FAERS Safety Report 10658473 (Version 2)
Quarter: 2014Q4

REPORT INFORMATION
  Report Type: Spontaneous
  Country: US (occurrence: US)
  Receive Date: 20141217
  Receipt Date: 20141226
  Transmission Date: 20150529
  Serious: Yes (Hospitalization)
  Sender: FDA-Public Use
  Company Number: US-PFIZER INC-2014340587

PATIENT
  Age: 33 Year
  Sex: Male

DRUGS (13)
  1. PRILOSEC [Concomitant]
     Active Substance: OMEPRAZOLE MAGNESIUM
     Dosage: 20 MG, DAILY
     Route: 048
     Dates: start: 20131028, end: 20141028
  2. COUMADIN [Concomitant]
     Active Substance: WARFARIN SODIUM
     Dosage: 10 MG BY MOUTH DAILY M/W/F 7.5 5 MG ALL OTHER DAYS
     Route: 048
     Dates: start: 20140522
  3. CARDIOVID PLUS [Concomitant]
     Dosage: 600-20-500-800 MG-MG- MCG-MCG CAPSULE BY MOUTH
     Route: 048
  4. REVATIO [Suspect]
     Active Substance: SILDENAFIL CITRATE
     Indication: PULMONARY HYPERTENSION
     Dosage: 20 MG, 3X/DAY
     Route: 048
     Dates: start: 20131028, end: 20141028
  5. APRESOLINE HYDROCHLORIDE [Concomitant]
     Active Substance: HYDRALAZINE HYDROCHLORIDE
     Dosage: 50 MG TABLET, 25 MG, 2X/DAY
     Route: 048
     Dates: start: 20140220
  6. PRINIVIL [Concomitant]
     Active Substance: LISINOPRIL
     Dosage: 2.5 MG, DAILY
     Route: 048
     Dates: start: 20140903
  7. ZESTRIL [Concomitant]
     Active Substance: LISINOPRIL
     Dosage: 2.5 MG, DAILY
     Route: 048
     Dates: start: 20140903
  8. REMERON [Concomitant]
     Active Substance: MIRTAZAPINE
     Dosage: 15 MG, DAILY, NIGHTLY
     Route: 048
     Dates: start: 20140923, end: 20141023
  9. MILK THISTLE [Concomitant]
     Active Substance: MILK THISTLE
     Dosage: UNK
     Route: 048
  10. COREG [Concomitant]
     Active Substance: CARVEDILOL
     Dosage: 25 MG, 2X/DAY
     Route: 048
     Dates: start: 20140619
  11. OMEGA 3 FISH OIL [Concomitant]
     Active Substance: FISH OIL\OMEGA-3 FATTY ACIDS
     Dosage: 1 DF (360-1200 MG), DAILY
     Route: 048
  12. NORCO [Concomitant]
     Active Substance: ACETAMINOPHEN\HYDROCODONE BITARTRATE
     Indication: PAIN
     Dosage: 1 DF (HYDROCODONE BITARTRATE 10MG/ PARACETAMOL 325 MG), AS NEEDED, EVERY 6 HOURS
     Route: 048
     Dates: start: 20140923, end: 20141122
  13. LEVOTHYROXINE [Concomitant]
     Active Substance: LEVOTHYROXINE
     Dosage: 75 ?G, DAILY ON AN EMPTY STOMACH
     Route: 048
     Dates: start: 20140528

REACTIONS (1)
  - Cardiac disorder [Unknown]
